FAERS Safety Report 7719293-8 (Version None)
Quarter: 2011Q3

REPORT INFORMATION
  Report Type: 
  Country: None (occurrence: None)
  Receive Date: 20110830
  Receipt Date: 20110823
  Transmission Date: 20111222
  Serious: Yes (Other)
  Sender: FDA-Public Use
  Company Number: US-JNJFOC-20110812523

PATIENT
  Sex: Female
  Weight: 106.6 kg

DRUGS (9)
  1. REMICADE [Suspect]
     Indication: RHEUMATOID ARTHRITIS
     Route: 042
     Dates: start: 20090101
  2. PREDNISONE [Concomitant]
     Indication: RHEUMATOID ARTHRITIS
     Route: 048
  3. VICODIN [Concomitant]
     Indication: PAIN
     Route: 048
  4. LISINOPRIL [Concomitant]
     Indication: HYPERTENSION
     Route: 048
  5. METOPROLOL TARTRATE [Concomitant]
     Indication: HYPERTENSION
     Route: 048
  6. METHOTREXATE [Concomitant]
     Indication: RHEUMATOID ARTHRITIS
     Route: 048
  7. FENTANYL [Concomitant]
     Indication: PAIN
     Route: 048
  8. DURAGESIC-100 [Suspect]
     Indication: PAIN
  9. PLAVIX [Concomitant]
     Indication: CEREBROVASCULAR ACCIDENT
     Route: 048

REACTIONS (9)
  - MEMORY IMPAIRMENT [None]
  - SOMNOLENCE [None]
  - OEDEMA PERIPHERAL [None]
  - GINGIVAL PAIN [None]
  - DYSPHONIA [None]
  - SPINAL DISORDER [None]
  - JOINT SWELLING [None]
  - DENTAL CARIES [None]
  - OROPHARYNGEAL PAIN [None]
